FAERS Safety Report 6155072-3 (Version None)
Quarter: 2009Q2

REPORT INFORMATION
  Report Type: 
  Country: None (occurrence: None)
  Receive Date: 20090410
  Receipt Date: 20090403
  Transmission Date: 20091009
  Serious: Yes (Hospitalization)
  Sender: FDA-Public Use
  Company Number: WAES0903USA05033

PATIENT
  Age: 64 Year
  Sex: Male

DRUGS (5)
  1. ZETIA [Suspect]
     Indication: HYPERCHOLESTEROLAEMIA
     Dosage: 10 MG/DAILY PO
     Route: 048
     Dates: start: 20080412
  2. ZOCOR [Suspect]
     Indication: HYPERCHOLESTEROLAEMIA
     Dosage: 20 MG/DAILY PO
     Route: 048
     Dates: start: 20080412
  3. ACETANOL [Concomitant]
  4. SIGMART [Concomitant]
  5. PIRMENOL HYDROCHLORIDE [Concomitant]

REACTIONS (1)
  - HYPERTROPHIC CARDIOMYOPATHY [None]
